FAERS Safety Report 8101773-7 (Version None)
Quarter: 2012Q1

REPORT INFORMATION
  Report Type: 
  Country: None (occurrence: None)
  Receive Date: 20120131
  Receipt Date: 20120123
  Transmission Date: 20120608
  Serious: Yes (Hospitalization, Other)
  Sender: FDA-Public Use
  Company Number: PHEH2012US001962

PATIENT
  Sex: Female
  Weight: 83.9 kg

DRUGS (25)
  1. ESTRADIOL [Concomitant]
     Dosage: 1.5 DF, QD
     Route: 048
  2. MAGNESIUM [Concomitant]
     Indication: SHORT-BOWEL SYNDROME
     Dosage: 250 ML/HR,  UNK
     Route: 042
  3. TRICOR [Concomitant]
     Indication: BLOOD CHOLESTEROL
     Dosage: 1 DF BEFORE MEALS IN AM, QD
     Route: 048
     Dates: start: 20101208
  4. AMANTADINE HCL [Concomitant]
     Dosage: 1 DF, QD
     Route: 048
     Dates: start: 20111108
  5. VAGIFEM [Concomitant]
  6. POTASSIUM [Concomitant]
     Indication: SHORT-BOWEL SYNDROME
  7. COUMADIN [Concomitant]
     Dosage: 4 MG, BID
     Route: 048
     Dates: start: 20120117
  8. ALBUTEROL SULFATE [Concomitant]
     Indication: WHEEZING
     Dosage: 1UNIT DOSE 4-6 HOURS AS NEEDED , UNK
     Dates: start: 20101208
  9. CYANOCOBALAMIN [Concomitant]
     Dosage: 1 ML, QD
     Route: 030
     Dates: start: 20101208
  10. LOPERAMIDE HCL [Concomitant]
     Indication: BOWEL MOVEMENT IRREGULARITY
     Dosage: 1 TAB INITIALLY FOLLOWED BY 2 TAB
     Dates: start: 20101208
  11. OXYBUTYNIN [Concomitant]
     Dosage: 1 DF, QD
     Route: 048
  12. COUMADIN [Concomitant]
     Dosage: 7.5 MG, QD
     Route: 048
     Dates: start: 20120116
  13. ADVAIR DISKUS 100/50 [Concomitant]
     Dosage: 1 PUFFS TWICE DAILY, BID
     Dates: start: 20101208
  14. COMBIVENT [Concomitant]
     Dosage: 2 PUFFS FOUR TIMES DAILY, QID
  15. PROMETHAZINE [Concomitant]
     Indication: NAUSEA
     Dosage: 1 DF, Q6H
     Route: 048
  16. NUVIGIL [Concomitant]
     Dosage: 150 MG, QD
     Route: 048
     Dates: start: 20111101
  17. GILENYA [Suspect]
     Indication: MULTIPLE SCLEROSIS
     Dosage: 0.5 MG, QD
     Route: 048
     Dates: start: 20111215
  18. LISINOPRIL [Concomitant]
     Indication: BLOOD PRESSURE
     Dosage: 1 DF, QD
     Dates: start: 20101208
  19. COUMADIN [Concomitant]
     Dosage: 5 MG, QD
     Route: 048
     Dates: start: 20120115
  20. EPIPEN [Concomitant]
     Indication: HYPERSENSITIVITY
     Dosage: 0.3 ML, ONCE IMMEDIATELY
  21. ACETAMINOPHEN [Concomitant]
     Dosage: 650 MG, PRN
  22. DILTIAZEM HCL [Concomitant]
     Indication: BLOOD PRESSURE
     Dosage: 1 DF, QD
  23. OMEPRAZOLE [Concomitant]
     Dosage: 20 MG, QD
     Route: 048
     Dates: start: 20110818
  24. SEROQUEL [Concomitant]
     Dosage: 0.5 DF, QHS
     Route: 048
     Dates: start: 20101208
  25. BOOST [Concomitant]

REACTIONS (6)
  - DYSPNOEA [None]
  - CHEST PAIN [None]
  - HYPERHIDROSIS [None]
  - PALPITATIONS [None]
  - PULMONARY EMBOLISM [None]
  - CHEST DISCOMFORT [None]
